FAERS Safety Report 4714930-4 (Version None)
Quarter: 2005Q3

REPORT INFORMATION
  Report Type: 
  Country: None (occurrence: None)
  Receive Date: 20050713
  Receipt Date: 20050706
  Transmission Date: 20060218
  Serious: Yes (Hospitalization)
  Sender: FDA-Public Use
  Company Number: UKP05000237

PATIENT
  Age: 75 Year
  Sex: Female

DRUGS (6)
  1. ACTONEL [Suspect]
     Indication: OSTEOPOROSIS
     Dosage: 35 MG, 1/WEEK, ORAL
     Route: 048
     Dates: start: 20050514, end: 20050529
  2. ASPIRIN [Concomitant]
  3. GLIBENCLAMIDE [Concomitant]
  4. PIZOTIFEN [Concomitant]
  5. PERINDOPRIL [Concomitant]
  6. CALCICHEW (CALCIUM CARBONATE) [Concomitant]

REACTIONS (12)
  - ALANINE AMINOTRANSFERASE INCREASED [None]
  - ASTHENIA [None]
  - BLOOD ALKALINE PHOSPHATASE INCREASED [None]
  - BLOOD BILIRUBIN INCREASED [None]
  - GAMMA-GLUTAMYLTRANSFERASE INCREASED [None]
  - JAUNDICE [None]
  - JOINT SWELLING [None]
  - LETHARGY [None]
  - LIVER FUNCTION TEST ABNORMAL [None]
  - MALAISE [None]
  - NAUSEA [None]
  - WHITE BLOOD CELL COUNT INCREASED [None]
